FAERS Safety Report 10622406 (Version 1)
Quarter: 2014Q4

REPORT INFORMATION
  Report Type: Spontaneous
  Country: US (occurrence: None)
  Receive Date: 20141201
  Receipt Date: 20141201
  Transmission Date: 20150529
  Serious: Yes (Hospitalization)
  Sender: FDA-Public Use
  Company Number: None

PATIENT
  Age: 81 Year
  Sex: Male
  Weight: 101.4 kg

DRUGS (1)
  1. HYDROMORPHONE [Suspect]
     Active Substance: HYDROMORPHONE
     Indication: PAIN
     Route: 042
     Dates: start: 20140515, end: 20140516

REACTIONS (4)
  - Unresponsive to stimuli [None]
  - Respiratory depression [None]
  - Sedation [None]
  - Miosis [None]

NARRATIVE: CASE EVENT DATE: 20140516
